FAERS Safety Report 5055860-0 (Version None)
Quarter: 2006Q3

REPORT INFORMATION
  Report Type: 
  Country: None (occurrence: None)
  Receive Date: 20060720
  Receipt Date: 20060706
  Transmission Date: 20061208
  Serious: Yes (Hospitalization)
  Sender: FDA-Public Use
  Company Number: HQWYE652607JUL06

PATIENT
  Sex: Male

DRUGS (4)
  1. ENBREL [Suspect]
     Indication: RHEUMATOID ARTHRITIS
     Route: 058
     Dates: start: 20060506, end: 20060622
  2. PREDNISOLONE [Concomitant]
     Route: 048
  3. LOXONIN [Concomitant]
     Dosage: UNKNOWN
     Route: 048
  4. GASTER [Concomitant]
     Dosage: UNKNOWN
     Route: 048

REACTIONS (3)
  - ABASIA [None]
  - BACK PAIN [None]
  - PAIN IN EXTREMITY [None]
